FAERS Safety Report 7686464 (Version 2)
Quarter: 2013Q2

REPORT INFORMATION
  Report Type: Report from Study
  Country: DE (occurrence: DE)
  Receive Date: 20101130
  Receipt Date: 20130409
  Transmission Date: 20140414
  Serious: Yes (Hospitalization)
  Sender: FDA-Public Use
  Company Number: DE-AMGEN-DEUCT2010003173

PATIENT
  Age: 55 Year
  Sex: Female

DRUGS (6)
  1. ETANERCEPT [Suspect]
     Indication: PSORIATIC ARTHROPATHY
     Dosage: 50 MG, QWK
     Route: 058
     Dates: start: 20090327, end: 20090902
  2. PANTOZOL                           /01263204/ [Concomitant]
     Dosage: UNK
  3. METYPRED                           /00049601/ [Concomitant]
     Dosage: UNK
  4. NEURONTIN [Concomitant]
     Dosage: UNK
  5. TILIDALOR [Concomitant]
     Dosage: UNK
  6. CALCIMAGON                         /00751501/ [Concomitant]
     Dosage: UNK

REACTIONS (4)
  - Bradyarrhythmia [Recovered/Resolved]
  - Atrial fibrillation [Recovered/Resolved]
  - Barrett^s oesophagus [Unknown]
  - Gastritis [Unknown]
